FAERS Safety Report 20713124 (Version 1)
Quarter: 2022Q2

REPORT INFORMATION
  Report Type: Spontaneous
  Country: US (occurrence: None)
  Receive Date: 20220414
  Receipt Date: 20220414
  Transmission Date: 20220721
  Serious: Yes (Death)
  Sender: FDA-Public Use
  Company Number: None

PATIENT
  Age: 68 Year
  Sex: Male

DRUGS (2)
  1. EFAVIRENZ [Suspect]
     Active Substance: EFAVIRENZ
     Indication: HIV infection
     Dosage: 600MG 1XDAY MOUTH?
     Route: 048
     Dates: start: 20211214, end: 20220407
  2. LAMIVUDINE\ZIDOVUDINE [Suspect]
     Active Substance: LAMIVUDINE\ZIDOVUDINE
     Indication: HIV infection
     Dosage: 150/300MG 2XDAY MOUTH?
     Route: 048
     Dates: start: 20211214, end: 20220407

REACTIONS (1)
  - Death [None]

NARRATIVE: CASE EVENT DATE: 20220407
